FAERS Safety Report 7293391-8 (Version None)
Quarter: 2011Q1

REPORT INFORMATION
  Report Type: 
  Country: None (occurrence: None)
  Receive Date: 20110215
  Receipt Date: 20110207
  Transmission Date: 20110831
  Serious: Yes (Other)
  Sender: FDA-Public Use
  Company Number: US-ROCHE-759225

PATIENT
  Age: 52 Year
  Sex: Female

DRUGS (7)
  1. BONIVA [Suspect]
     Route: 065
  2. LEVOTHYROXINE SODIUM [Concomitant]
     Indication: HYPOTHYROIDISM
  3. IBUPROFEN [Concomitant]
  4. ENBREL [Suspect]
     Indication: RHEUMATOID ARTHRITIS
     Route: 065
  5. METHOTREXATE [Concomitant]
  6. FOLIC ACID [Concomitant]
  7. PANTOPRAZOLE [Concomitant]

REACTIONS (1)
  - BASEDOW'S DISEASE [None]
